FAERS Safety Report 7447971-7 (Version None)
Quarter: 2011Q2

REPORT INFORMATION
  Report Type: 
  Country: None (occurrence: None)
  Receive Date: 20110429
  Receipt Date: 20110419
  Transmission Date: 20111010
  Serious: Yes (Death, Hospitalization)
  Sender: FDA-Public Use
  Company Number: US-CELGENEUS-163-21880-11042589

PATIENT
  Age: 44 Year
  Sex: Female

DRUGS (3)
  1. REVLIMID [Suspect]
     Indication: MULTIPLE MYELOMA
     Dosage: 10 MILLIGRAM
     Route: 048
     Dates: start: 20101101
  2. GLIPIZIDE [Concomitant]
     Route: 065
  3. PROCHLORPERAZINE TAB [Concomitant]
     Route: 065

REACTIONS (7)
  - PANCREATITIS [None]
  - RENAL FAILURE [None]
  - FEBRILE NEUTROPENIA [None]
  - RESPIRATORY FAILURE [None]
  - HAEMORRHAGE INTRACRANIAL [None]
  - SEPSIS [None]
  - DEATH [None]
